FAERS Safety Report 7859559-4 (Version None)
Quarter: 2011Q4

REPORT INFORMATION
  Report Type: 
  Country: None (occurrence: None)
  Receive Date: 20111020
  Receipt Date: 20111012
  Transmission Date: 20120403
  Serious: Yes (Other)
  Sender: FDA-Public Use
  Company Number: AEUSA201100228

PATIENT
  Age: 64 Year
  Sex: Male
  Weight: 113.8529 kg

DRUGS (11)
  1. ZOVIRAX /00587301/ [Concomitant]
  2. CLONAZEPAM [Concomitant]
  3. AMBIEN [Concomitant]
  4. MULTI-VITAMINS [Concomitant]
  5. OMEPRAZOLE [Concomitant]
  6. ISOSORBIDE DINITRATE [Concomitant]
  7. GAMUNEX [Suspect]
     Indication: AUTOIMMUNE NEUROPATHY
     Dosage: 400 MG/KG;QM;IV
     Route: 042
     Dates: start: 20110511
  8. EFFEXOR XR [Concomitant]
  9. INDAPAMIDE [Concomitant]
  10. PRIVIGEN [Suspect]
     Indication: AUTOIMMUNE NEUROPATHY
     Dosage: 400 MG/KG;QM;IV
     Route: 042
     Dates: start: 20110801, end: 20110803
  11. FLOMAX [Concomitant]

REACTIONS (1)
  - JUGULAR VEIN THROMBOSIS [None]
